FAERS Safety Report 18248552 (Version 1)
Quarter: 2020Q3

REPORT INFORMATION
  Report Type: Spontaneous
  Country: CN (occurrence: CN)
  Receive Date: 20200909
  Receipt Date: 20200909
  Transmission Date: 20201103
  Serious: Yes (Hospitalization)
  Sender: FDA-Public Use
  Company Number: CN-LUPIN PHARMACEUTICALS INC.-2020-04914

PATIENT
  Age: 26 Year
  Sex: Male

DRUGS (5)
  1. MOXIFLOXACIN HYDROCHLORIDE. [Suspect]
     Active Substance: MOXIFLOXACIN HYDROCHLORIDE
     Indication: PNEUMONIA MYCOPLASMAL
     Dosage: 400 MILLIGRAM, QD
     Route: 065
     Dates: start: 201705, end: 201705
  2. METHYLPREDNISOLONE. [Suspect]
     Active Substance: METHYLPREDNISOLONE
     Indication: PNEUMONIA MYCOPLASMAL
     Dosage: 40 MILLIGRAM, QD
     Route: 065
     Dates: start: 201704, end: 201705
  3. MEROPENEM. [Suspect]
     Active Substance: MEROPENEM
     Indication: PNEUMONIA MYCOPLASMAL
     Dosage: 1 GRAM, TID
     Route: 065
     Dates: start: 201705, end: 201705
  4. LEVOFLOXACIN. [Suspect]
     Active Substance: LEVOFLOXACIN
     Indication: PNEUMONIA MYCOPLASMAL
     Dosage: 0.6 GRAM, QD
     Route: 065
     Dates: start: 20170421, end: 20170426
  5. AZITHROMYCIN ANHYDROUS. [Suspect]
     Active Substance: AZITHROMYCIN ANHYDROUS
     Indication: PNEUMONIA MYCOPLASMAL
     Dosage: UNK
     Route: 065
     Dates: start: 201704, end: 201705

REACTIONS (1)
  - Drug ineffective [Unknown]
